FAERS Safety Report 7137561-8 (Version None)
Quarter: 2010Q4

REPORT INFORMATION
  Report Type: 
  Country: None (occurrence: None)
  Receive Date: 20101206
  Receipt Date: 20101123
  Transmission Date: 20110411
  Serious: Yes (Life-Threatening, Hospitalization)
  Sender: FDA-Public Use
  Company Number: FR-ELI_LILLY_AND_COMPANY-FR201011006791

PATIENT
  Age: 81 Year
  Sex: Female

DRUGS (2)
  1. CYMBALTA [Suspect]
     Dosage: 30 MG, DAILY (1/D)
     Route: 048
  2. CIFLOX [Concomitant]
     Indication: PYELONEPHRITIS
     Dosage: UNK, UNKNOWN
     Route: 065
     Dates: start: 20090501, end: 20090501

REACTIONS (6)
  - FALL [None]
  - HAEMORRHAGE [None]
  - HEPATIC FAILURE [None]
  - HEPATITIS [None]
  - PYELONEPHRITIS [None]
  - VENTRICULAR ARRHYTHMIA [None]
